FAERS Safety Report 22354665 (Version 2)
Quarter: 2024Q4

REPORT INFORMATION
  Report Type: Spontaneous
  Country: RO (occurrence: RO)
  Receive Date: 20230523
  Receipt Date: 20241007
  Transmission Date: 20250115
  Serious: Yes (Death, Life-Threatening, Hospitalization, Other)
  Sender: PFIZER
  Company Number: RO-PFIZER INC-202300193958

PATIENT
  Sex: Male
  Weight: 2.3 kg

DRUGS (21)
  1. MEROPENEM [Suspect]
     Active Substance: MEROPENEM
     Indication: Brain abscess
     Dosage: 40 MG/KG, DOSE EVERY 12 H, FOR THE FIRST SEVEN DAYS OF LIFE, THEN EVERY 8 H, IN A 1-HOUR INFUSION
     Route: 042
  2. FLUCONAZOLE [Suspect]
     Active Substance: FLUCONAZOLE
     Indication: Brain abscess
     Dosage: UNK, AT A THERAPEUTIC DOSE FOR EIGHT DAYS
  3. LINEZOLID [Suspect]
     Active Substance: LINEZOLID
     Indication: Brain abscess
     Dosage: UNK
  4. CILASTATIN SODIUM\IMIPENEM [Suspect]
     Active Substance: CILASTATIN SODIUM\IMIPENEM
     Dosage: UNK
  5. VANCOMYCIN [Suspect]
     Active Substance: VANCOMYCIN
     Indication: Brain abscess
     Dosage: 15 MG/KG/DOSE EVERY 12 H
  6. NETILMICIN [Suspect]
     Active Substance: NETILMICIN
     Indication: Brain abscess
     Dosage: 4 MG/KG, DAILY FOR A PERIOD OF 10 DAYS
  7. CIPROFLOXACIN [Suspect]
     Active Substance: CIPROFLOXACIN
     Indication: Brain abscess
     Dosage: 20 MG/KG, DAILY FOR ANOTHER 4 DAYS
  8. PHENYTOIN [Suspect]
     Active Substance: PHENYTOIN
     Indication: Seizure
     Dosage: 15 MG/KG PER DOSE WITH A SINGLE DOSE
  9. PHENYTOIN [Suspect]
     Active Substance: PHENYTOIN
     Dosage: 6-8 MG/KG/DAY IN TWO DIVIDED DOSES
  10. DIAZEPAM [Suspect]
     Active Substance: DIAZEPAM
     Indication: Seizure
     Dosage: UNK
  11. DEXAMETHASONE [Suspect]
     Active Substance: DEXAMETHASONE
     Indication: Inflammation
     Dosage: UNK
  12. CHLORAMPHENICOL [Suspect]
     Active Substance: CHLORAMPHENICOL
     Indication: Brain abscess
     Dosage: 10 MG/KG, DAILY, INTRAVENTRICULAR
  13. AZTREONAM [Suspect]
     Active Substance: AZTREONAM
     Indication: Brain abscess
     Dosage: 30 MG/KG, EVERY 8 HOURS
     Route: 042
  14. AMIKACIN [Suspect]
     Active Substance: AMIKACIN
     Indication: Brain abscess
     Dosage: 10 MG/KG, INTRAVENTRICULAR EVERY 8 HOURS
  15. AMIKACIN [Suspect]
     Active Substance: AMIKACIN
     Dosage: 5 MG/KG,  INTRAVENTRICULAR DAILY
  16. GENTAMICIN [Suspect]
     Active Substance: GENTAMICIN
     Indication: Brain abscess
     Dosage: 2 MG/KG, DAILY, FOR 4 DAYS, INTRAVENTRICULAR
  17. THIOPENTAL [Suspect]
     Active Substance: THIOPENTAL
     Indication: Seizure
     Dosage: UNK
  18. CASPOFUNGIN [Suspect]
     Active Substance: CASPOFUNGIN
     Indication: Brain abscess
     Dosage: UNK, FOR 14 DAYS
  19. AMPHOTERICIN B [Suspect]
     Active Substance: AMPHOTERICIN B
     Indication: Brain abscess
     Dosage: UNK, FOR 3 DAYS
  20. PIPERACILLIN AND TAZOBACTAM [Suspect]
     Active Substance: PIPERACILLIN SODIUM\TAZOBACTAM SODIUM
     Indication: Brain abscess
     Dosage: UNK
     Route: 042
  21. CEFEPIME [Suspect]
     Active Substance: CEFEPIME HYDROCHLORIDE
     Indication: Brain abscess
     Dosage: UNK

REACTIONS (4)
  - Drug ineffective [Fatal]
  - Abdominal compartment syndrome [Fatal]
  - Multiple organ dysfunction syndrome [Fatal]
  - Off label use [Unknown]
